FAERS Safety Report 7197347-5 (Version None)
Quarter: 2010Q4

REPORT INFORMATION
  Report Type: 
  Country: None (occurrence: None)
  Receive Date: 20101213
  Receipt Date: 20101202
  Transmission Date: 20110411
  Serious: Yes (Other)
  Sender: FDA-Public Use
  Company Number: 2010SP057472

PATIENT
  Age: 26 Year
  Sex: Female

DRUGS (2)
  1. AERINAZE (DESLORATADINE W/PSEUDOPHEDIRNE) [Suspect]
     Indication: PRODUCT USED FOR UNKNOWN INDICATION
  2. ALCOHOL (ETHANOL) [Suspect]
     Indication: PRODUCT USED FOR UNKNOWN INDICATION

REACTIONS (7)
  - ALCOHOL INTERACTION [None]
  - ALCOHOL USE [None]
  - CARDIAC DISORDER [None]
  - EPICONDYLITIS [None]
  - HYPERVENTILATION [None]
  - PANIC REACTION [None]
  - TACHYCARDIA [None]
